FAERS Safety Report 9629477 (Version 2)
Quarter: 2013Q4

REPORT INFORMATION
  Report Type: Spontaneous
  Country: JP (occurrence: JP)
  Receive Date: 20131017
  Receipt Date: 20131115
  Transmission Date: 20140711
  Serious: Yes (Other)
  Sender: FDA-Public Use
  Company Number: JP-PFIZER INC-2013296522

PATIENT
  Age: 6 Decade
  Sex: Male

DRUGS (2)
  1. NORVASC [Suspect]
     Dosage: 5 MG, 1X/DAY
     Route: 048
     Dates: start: 2012
  2. TENORMIN [Concomitant]

REACTIONS (2)
  - Deafness [Recovering/Resolving]
  - Dizziness [Unknown]
